FAERS Safety Report 7787844-3 (Version None)
Quarter: 2011Q3

REPORT INFORMATION
  Report Type: 
  Country: None (occurrence: None)
  Receive Date: 20110930
  Receipt Date: 20110920
  Transmission Date: 20111222
  Serious: No
  Sender: FDA-Public Use
  Company Number: US-BIOGENIDEC-2010BI018260

PATIENT
  Sex: Female

DRUGS (1)
  1. TYSABRI [Suspect]
     Indication: MULTIPLE SCLEROSIS
     Route: 042
     Dates: start: 20080523, end: 20100212

REACTIONS (9)
  - INFLUENZA LIKE ILLNESS [None]
  - ARTHRITIS [None]
  - FEELING ABNORMAL [None]
  - FATIGUE [None]
  - MYALGIA [None]
  - STRESS [None]
  - PAIN [None]
  - COORDINATION ABNORMAL [None]
  - PAIN IN EXTREMITY [None]
